FAERS Safety Report 5756563-7 (Version None)
Quarter: 2008Q2

REPORT INFORMATION
  Report Type: 
  Country: None (occurrence: None)
  Receive Date: 20080529
  Receipt Date: 20080514
  Transmission Date: 20081010
  Serious: Yes (Hospitalization)
  Sender: FDA-Public Use
  Company Number: 2008AL004908

PATIENT
  Age: 49 Year
  Sex: Male

DRUGS (1)
  1. DIGOXIN [Suspect]

REACTIONS (4)
  - CARDIAC DISORDER [None]
  - DIZZINESS [None]
  - HEART RATE IRREGULAR [None]
  - HYPOTENSION [None]
